FAERS Safety Report 11366039 (Version 2)
Quarter: 2016Q3

REPORT INFORMATION
  Report Type: Spontaneous
  Country: US (occurrence: US)
  Receive Date: 20150811
  Receipt Date: 20160812
  Transmission Date: 20161109
  Serious: Yes (Hospitalization)
  Sender: FDA-Public Use
  Company Number: US-BAYER-2015-391620

PATIENT
  Age: 39 Year
  Sex: Male
  Weight: 96.15 kg

DRUGS (7)
  1. AVELOX [Suspect]
     Active Substance: MOXIFLOXACIN HYDROCHLORIDE
     Indication: SINUSITIS
     Dosage: 400 MG, QD
     Dates: start: 20110920, end: 20110929
  2. AVELOX [Suspect]
     Active Substance: MOXIFLOXACIN HYDROCHLORIDE
     Indication: SINUSITIS
     Dosage: 400 MG, UNK
     Dates: start: 20090901, end: 20090913
  3. AVELOX [Suspect]
     Active Substance: MOXIFLOXACIN HYDROCHLORIDE
     Indication: SINUSITIS
     Dosage: 400 MG, QD
     Dates: start: 20120712, end: 20120721
  4. AVELOX [Suspect]
     Active Substance: MOXIFLOXACIN HYDROCHLORIDE
     Indication: SINUSITIS
     Dosage: 400 MG, QD
     Dates: start: 20121113, end: 20121122
  5. CIPRO [Suspect]
     Active Substance: CIPROFLOXACIN HYDROCHLORIDE
     Indication: INFECTION
     Dosage: 500 MG, BID
     Dates: start: 20150611, end: 20150624
  6. AVELOX [Suspect]
     Active Substance: MOXIFLOXACIN HYDROCHLORIDE
     Indication: SINUSITIS
     Dosage: 400 MG, QD
     Dates: start: 20120916, end: 20120925
  7. OXYCODONE [Concomitant]
     Active Substance: OXYCODONE
     Indication: PROCEDURAL PAIN
     Dosage: UNK
     Dates: start: 201411, end: 201412

REACTIONS (10)
  - Pain [None]
  - Neuropathy peripheral [Not Recovered/Not Resolved]
  - Injury [None]
  - Hypoaesthesia [Not Recovered/Not Resolved]
  - Anxiety [None]
  - Discomfort [None]
  - Activities of daily living impaired [None]
  - Emotional distress [None]
  - Anhedonia [None]
  - Neuropathy peripheral [None]

NARRATIVE: CASE EVENT DATE: 201301
